FAERS Safety Report 13565423 (Version 2)
Quarter: 2017Q3

REPORT INFORMATION
  Report Type: Spontaneous
  Country: US (occurrence: US)
  Receive Date: 20170519
  Receipt Date: 20170904
  Transmission Date: 20171127
  Serious: Yes (Life-Threatening, Other)
  Sender: FDA-Public Use
  Company Number: US-WEST-WARD PHARMACEUTICALS CORP.-US-H14001-17-01507

PATIENT
  Age: 77 Year
  Sex: Male

DRUGS (2)
  1. LORAZEPAM. [Suspect]
     Active Substance: LORAZEPAM
     Indication: DELIRIUM TREMENS
     Route: 042
  2. DIAZEPAM. [Suspect]
     Active Substance: DIAZEPAM
     Indication: DELIRIUM TREMENS
     Dosage: 700 MG DIAZEPAM EQUIVALENTS OVER 7 DAYS
     Route: 065

REACTIONS (6)
  - Electrocardiogram QT prolonged [Unknown]
  - Respiratory depression [Unknown]
  - Delirium [Unknown]
  - Agitation [Unknown]
  - Medication error [Unknown]
  - Atrial fibrillation [Unknown]
